FAERS Safety Report 6876568-2 (Version None)
Quarter: 2010Q3

REPORT INFORMATION
  Report Type: 
  Country: None (occurrence: None)
  Receive Date: 20100727
  Receipt Date: 20100723
  Transmission Date: 20110219
  Serious: Yes (Other)
  Sender: FDA-Public Use
  Company Number: GB-WYE-G06465010

PATIENT

DRUGS (1)
  1. TIGECYCLINE [Suspect]
     Dosage: UNKNOWN

REACTIONS (1)
  - HEPATOTOXICITY [None]
